FAERS Safety Report 20954158 (Version 1)
Quarter: 2022Q2

REPORT INFORMATION
  Report Type: Other
  Country: IT (occurrence: IT)
  Receive Date: 20220614
  Receipt Date: 20220614
  Transmission Date: 20220721
  Serious: Yes (Death, Other)
  Sender: FDA-Public Use
  Company Number: IT-CELLTRION HEALTHCARE HUNGARY KFT-2022IT008003

PATIENT

DRUGS (11)
  1. RITUXIMAB [Suspect]
     Active Substance: RITUXIMAB
     Indication: Burkitt^s lymphoma
     Dosage: 375MG/M2 ON DAY 2, DAY 14, DAY 29 AND DAY 36 POST INDUCTION DAY 56 POST CONSOLIDATION (HIV -) OR DAY
     Route: 041
  2. METHYLPREDNISOLONE [Suspect]
     Active Substance: METHYLPREDNISOLONE
     Indication: Burkitt^s lymphoma
     Dosage: 0.5-1 MG/KG/D ON DAY -2, DAY -1 PRE INDUCTION, ON THE DAY OF INDUCTION, AND DAY 1 POST INDUCTION
     Route: 042
  3. DOXORUBICIN [Suspect]
     Active Substance: DOXORUBICIN
     Indication: Burkitt^s lymphoma
     Dosage: 50 MG/M2 ON DAY 29 POST INDUCTION
     Route: 040
  4. CYTARABINE\METHOTREXATE [Suspect]
     Active Substance: CYTARABINE\METHOTREXATE
     Indication: Burkitt^s lymphoma
     Dosage: METHOTREXATE 12 MG + CYTARABINE 50 MG + STEROOIDS (HYDROCORTISONE) 40 MG ON DAY 5, DAY 19 AND DAY 29
     Route: 037
  5. VINCRISTINE [Suspect]
     Active Substance: VINCRISTINE
     Indication: Burkitt^s lymphoma
     Dosage: VINCRISTINE 2 MG TOTAL DOSE ON THE DAY OF INDUCTION AND DAY 36 POST INDUCTION
     Route: 040
  6. CYTARABINE [Suspect]
     Active Substance: CYTARABINE
     Indication: Burkitt^s lymphoma
     Dosage: 750 MG/M2 FOLLOWED 3 HOURS LATER BY 1 G/M2 BY 24-HOUR INFUSION ON DAY 50-53 POST CONSOLIDATION (HIV
     Route: 065
  7. CISPLATIN [Suspect]
     Active Substance: CISPLATIN
     Indication: Burkitt^s lymphoma
     Dosage: 20 MG/M2/D BY 24-HOUR INFUSION
     Route: 065
  8. ETOPOSIDE [Suspect]
     Active Substance: ETOPOSIDE
     Indication: Burkitt^s lymphoma
     Dosage: 250 MG/M2 EVERY 12 HOURS ON DAY 15 POST INDUCATION
     Route: 065
  9. METHOTREXATE [Suspect]
     Active Substance: METHOTREXATE
     Indication: Burkitt^s lymphoma
     Dosage: 3 G/M2 OVER 6 HOURS WITH LEUCOVORIN RESCUE THERAPY ON DAY 7 AND DAY 21 POST INDUCTION
     Route: 042
  10. CYCLOPHOSPHAMIDE [Suspect]
     Active Substance: CYCLOPHOSPHAMIDE
     Indication: Burkitt^s lymphoma
     Dosage: 500 MG/M2 OVER 1 HOUR INFUSION ON THE DAY OF INDUCTION AND DAY 1 POST INDUCTION
     Route: 065
  11. CYCLOPHOSPHAMIDE [Suspect]
     Active Substance: CYCLOPHOSPHAMIDE
     Dosage: 500 MG/M2 OVER 1 HOUR INFUSION ON THE DAY OF INDUCTION AND DAY 1 POST INDUCTION
     Route: 065

REACTIONS (5)
  - Sepsis [Fatal]
  - Disease progression [Fatal]
  - Lymphoma [Fatal]
  - Disease recurrence [Unknown]
  - Off label use [Unknown]
